FAERS Safety Report 20814553 (Version 1)
Quarter: 2022Q2

REPORT INFORMATION
  Report Type: Spontaneous
  Country: GB (occurrence: NO)
  Receive Date: 20220511
  Receipt Date: 20220511
  Transmission Date: 20220720
  Serious: Yes (Hospitalization, Other)
  Sender: FDA-Public Use
  Company Number: GB-CELGENE-GBR-20220204495

PATIENT
  Age: 67 Year
  Sex: Female
  Weight: 76 kg

DRUGS (48)
  1. LENALIDOMIDE [Suspect]
     Active Substance: LENALIDOMIDE
     Indication: Follicular lymphoma
     Dosage: 40 MILLIGRAM DAILY;
     Route: 048
     Dates: start: 20220118
  2. LENALIDOMIDE [Suspect]
     Active Substance: LENALIDOMIDE
     Indication: Product used for unknown indication
     Dosage: 20 MILLIGRAM DAILY; THERAPY DURATION : 16 DAYS
     Route: 048
     Dates: start: 20220118, end: 20220202
  3. EPCORITAMAB [Suspect]
     Active Substance: EPCORITAMAB
     Indication: Follicular lymphoma
     Route: 042
     Dates: start: 20220307
  4. EPCORITAMAB [Suspect]
     Active Substance: EPCORITAMAB
     Indication: B-cell lymphoma
     Dosage: UNK UNK, QD
     Route: 058
     Dates: start: 20220118, end: 20220118
  5. EPCORITAMAB [Suspect]
     Active Substance: EPCORITAMAB
     Route: 042
     Dates: start: 20220221
  6. EPCORITAMAB [Suspect]
     Active Substance: EPCORITAMAB
     Route: 042
     Dates: start: 20220301
  7. EPCORITAMAB [Suspect]
     Active Substance: EPCORITAMAB
     Route: 042
     Dates: start: 20210125
  8. EPCORITAMAB [Suspect]
     Active Substance: EPCORITAMAB
     Route: 042
     Dates: start: 20220214
  9. EPCORITAMAB [Suspect]
     Active Substance: EPCORITAMAB
     Route: 042
     Dates: start: 20220207
  10. EPCORITAMAB [Suspect]
     Active Substance: EPCORITAMAB
     Route: 042
     Dates: start: 20220201
  11. EPCORITAMAB [Suspect]
     Active Substance: EPCORITAMAB
     Route: 042
     Dates: start: 20210118
  12. RITUXIMAB [Suspect]
     Active Substance: RITUXIMAB
     Indication: B-cell lymphoma
     Route: 065
     Dates: start: 20220118
  13. RITUXIMAB [Suspect]
     Active Substance: RITUXIMAB
     Indication: Follicular lymphoma
     Route: 065
     Dates: start: 20220201
  14. RITUXIMAB [Suspect]
     Active Substance: RITUXIMAB
     Route: 065
     Dates: start: 20220207
  15. RITUXIMAB [Suspect]
     Active Substance: RITUXIMAB
     Route: 041
     Dates: start: 20220118
  16. ALLOPURINOL [Concomitant]
     Active Substance: ALLOPURINOL
     Indication: Product used for unknown indication
     Dosage: UNK UNK, QD,
     Route: 065
     Dates: start: 20220118
  17. BACTRIM [Concomitant]
     Active Substance: SULFAMETHOXAZOLE\TRIMETHOPRIM
     Indication: Product used for unknown indication
     Dosage: UNK
     Route: 065
     Dates: start: 20220111
  18. BACTRIM [Concomitant]
     Active Substance: SULFAMETHOXAZOLE\TRIMETHOPRIM
     Dosage: UNK UNK, QD
     Route: 065
     Dates: start: 20220111
  19. CETIRIZINE [Concomitant]
     Active Substance: CETIRIZINE HYDROCHLORIDE
     Indication: Product used for unknown indication
     Dosage: 10 MILLIGRAM DAILY; THERAPY DURATION : 14 DAYS
     Route: 065
     Dates: start: 20220118, end: 20220201
  20. CETIRIZINE [Concomitant]
     Active Substance: CETIRIZINE HYDROCHLORIDE
     Dosage: 10 MILLIGRAM, UNIT DOSE : 10 MG, THERAPY DURATION : 14 DAYS
     Route: 048
     Dates: start: 20220118, end: 20220207
  21. EXFORGE [Concomitant]
     Active Substance: AMLODIPINE BESYLATE\VALSARTAN
     Indication: Product used for unknown indication
     Dosage: UNK
     Route: 065
     Dates: start: 202001
  22. EXFORGE [Concomitant]
     Active Substance: AMLODIPINE BESYLATE\VALSARTAN
     Dosage: UNK UNK, QD
     Route: 065
     Dates: start: 202001
  23. FRAGMIN [Concomitant]
     Active Substance: DALTEPARIN SODIUM
     Indication: Product used for unknown indication
     Dosage: UNK
     Route: 065
     Dates: start: 20211215
  24. FRAGMIN [Concomitant]
     Active Substance: DALTEPARIN SODIUM
     Dosage: UNK
     Route: 065
     Dates: start: 20211215
  25. FUROSEMIDE [Concomitant]
     Active Substance: FUROSEMIDE
     Indication: Product used for unknown indication
     Dosage: UNK
     Dates: start: 20220125
  26. JANUMET [Concomitant]
     Active Substance: METFORMIN HYDROCHLORIDE\SITAGLIPTIN PHOSPHATE
     Indication: Product used for unknown indication
     Dosage: UNK,THERAPY DURATION : 3  DAYS
     Route: 065
     Dates: start: 20220123, end: 20220125
  27. JANUMET [Concomitant]
     Active Substance: METFORMIN HYDROCHLORIDE\SITAGLIPTIN PHOSPHATE
     Dosage: UNK UNK, QD, FREQUENCY : 1 , FREQUENCY TIME : 1 DAYS
     Route: 065
     Dates: start: 2012
  28. JANUMET [Concomitant]
     Active Substance: METFORMIN HYDROCHLORIDE\SITAGLIPTIN PHOSPHATE
     Dosage: UNK
     Route: 065
     Dates: start: 2012
  29. LACTULOSE [Concomitant]
     Active Substance: LACTULOSE
     Indication: Product used for unknown indication
     Dosage: UNK UNK, QD,
     Route: 065
     Dates: start: 20220125
  30. LACTULOSE [Concomitant]
     Active Substance: LACTULOSE
     Dosage: UNK
     Route: 065
     Dates: start: 20220125
  31. SODIUM PICOSULFATE [Concomitant]
     Active Substance: SODIUM PICOSULFATE
     Indication: Product used for unknown indication
     Dosage: UNK UNK, QD,
     Route: 065
     Dates: start: 20220125
  32. SODIUM PICOSULFATE [Concomitant]
     Active Substance: SODIUM PICOSULFATE
     Dosage: UNK
     Route: 065
     Dates: start: 20220125
  33. LEVOTHYROXINE SODIUM [Concomitant]
     Active Substance: LEVOTHYROXINE SODIUM
     Indication: Product used for unknown indication
     Dosage: UNK
     Route: 065
     Dates: start: 2007
  34. LEVOTHYROXINE SODIUM [Concomitant]
     Active Substance: LEVOTHYROXINE SODIUM
     Dosage: UNK UNK, QD,
     Route: 065
     Dates: start: 2007
  35. LIPITOR [Concomitant]
     Active Substance: ATORVASTATIN CALCIUM
     Indication: Product used for unknown indication
     Dosage: UNK UNK, QD,
     Route: 065
     Dates: start: 2018
  36. MAGNESIUM [Concomitant]
     Active Substance: MAGNESIUM
     Indication: Product used for unknown indication
     Dosage: UNK
     Route: 065
     Dates: start: 20220125
  37. MAGNESIUM [Concomitant]
     Active Substance: MAGNESIUM
     Dosage: UNK UNK, QD,
     Route: 065
     Dates: start: 20220125
  38. METFORMIN [Concomitant]
     Active Substance: METFORMIN HYDROCHLORIDE
     Indication: Product used for unknown indication
     Dosage: UNK UNK, QD,
     Route: 065
     Dates: start: 20220123, end: 20220125
  39. PANTOPRAZOLE SODIUM [Concomitant]
     Active Substance: PANTOPRAZOLE SODIUM
     Indication: Product used for unknown indication
     Dosage: UNK UNK, QD,
     Route: 065
     Dates: start: 20220111
  40. ACETAMINOPHEN [Concomitant]
     Active Substance: ACETAMINOPHEN
     Indication: Product used for unknown indication
     Dosage: UNK UNK, QD,
     Route: 065
     Dates: start: 20220118, end: 20220207
  41. PREDNISOLONE [Concomitant]
     Active Substance: PREDNISOLONE
     Indication: Prophylaxis
     Dosage: 100 MILLIGRAM DAILY; THERAPY DURATION : 6  DAYS
     Route: 065
     Dates: start: 20220118, end: 20220121
  42. PREDNISOLONE [Concomitant]
     Active Substance: PREDNISOLONE
     Dosage: 100 MILLIGRAM, UNIT DOSE: 100 MILLIGRAM, THERAPY DURATION : 6  DAYS
     Route: 065
     Dates: start: 20220118, end: 20220121
  43. PREDNISOLONE [Concomitant]
     Active Substance: PREDNISOLONE
     Dosage: 100 MILLIGRAM DAILY; UNK UNK, QD, THERAPY DURATION : 6 DAYS
     Route: 065
     Dates: start: 20220111, end: 20220117
  44. PREDNISOLONE [Concomitant]
     Active Substance: PREDNISOLONE
     Dosage: 100 MILLIGRAM DAILY; 100 MILLIGRAM, QD, THERAPY DURATION : 6 DAYS
     Route: 065
     Dates: start: 20220125
  45. PREDNISOLONE [Concomitant]
     Active Substance: PREDNISOLONE
     Dosage: 100 MILLIGRAM, THERAPY DURATION : 6 DAYS, UNIT DOSE : 100 MG
     Route: 065
     Dates: start: 20220111, end: 20220117
  46. SODIUM CHLORIDE [Concomitant]
     Active Substance: SODIUM CHLORIDE
     Indication: Product used for unknown indication
     Dosage: UNK, THERAPY DURATION : 1 DAYS
     Route: 065
     Dates: start: 20220118, end: 20220119
  47. SODIUM CHLORIDE [Concomitant]
     Active Substance: SODIUM CHLORIDE
     Dosage: UNK UNK, QD,
     Route: 065
     Dates: start: 20220118, end: 20220119
  48. VALTREX [Concomitant]
     Active Substance: VALACYCLOVIR HYDROCHLORIDE
     Indication: Product used for unknown indication
     Dosage: UNK UNK, QD,
     Route: 065
     Dates: start: 20220111

REACTIONS (1)
  - Cytokine release syndrome [Recovered/Resolved]

NARRATIVE: CASE EVENT DATE: 20220123
